FAERS Safety Report 7320807-0 (Version None)
Quarter: 2011Q1

REPORT INFORMATION
  Report Type: 
  Country: None (occurrence: None)
  Receive Date: 20110216
  Receipt Date: 20110131
  Transmission Date: 20110831
  Serious: Yes (Disabling)
  Sender: FDA-Public Use
  Company Number: 100370125-AKO-5050

PATIENT
  Age: 50 Year
  Sex: Male

DRUGS (2)
  1. IC-GREEN 25 MG VIAL, AKORN, INC [Suspect]
  2. IC-GREEN 25 MG VIAL, AKORN, INC [Suspect]
     Indication: MACULOPATHY

REACTIONS (3)
  - CLOSTRIDIAL INFECTION [None]
  - BLINDNESS [None]
  - PAIN [None]
